FAERS Safety Report 17342915 (Version 1)
Quarter: 2020Q1

REPORT INFORMATION
  Report Type: Spontaneous
  Country: US (occurrence: US)
  Receive Date: 20200129
  Receipt Date: 20200129
  Transmission Date: 20200409
  Serious: No
  Sender: FDA-Public Use
  Company Number: US-ALLERGAN-1910843US

PATIENT
  Sex: Female

DRUGS (2)
  1. IMPLANTS [Suspect]
     Active Substance: UNSPECIFIED INGREDIENT
     Dosage: UNK
     Route: 065
     Dates: start: 2016
  2. BOTOX [Suspect]
     Active Substance: ONABOTULINUMTOXINA
     Indication: PRODUCT USED FOR UNKNOWN INDICATION
     Dosage: UNK UNK, SINGLE
     Route: 030

REACTIONS (16)
  - Feeling abnormal [Unknown]
  - Fatigue [Unknown]
  - Chest pain [Unknown]
  - Headache [Unknown]
  - Radiculopathy [Unknown]
  - Dermatitis contact [Unknown]
  - Nausea [Unknown]
  - Neuralgia [Unknown]
  - Malaise [Unknown]
  - Musculoskeletal pain [Unknown]
  - Neck pain [Unknown]
  - Eye disorder [Unknown]
  - Pain in extremity [Unknown]
  - Discomfort [Unknown]
  - Back pain [Unknown]
  - Musculoskeletal chest pain [Unknown]

NARRATIVE: CASE EVENT DATE: 2017
